FAERS Safety Report 7234315-9 (Version None)
Quarter: 2011Q1

REPORT INFORMATION
  Report Type: 
  Country: None (occurrence: None)
  Receive Date: 20110119
  Receipt Date: 20110112
  Transmission Date: 20110831
  Serious: Yes (Other)
  Sender: FDA-Public Use
  Company Number: CH-NAPPMUNDI-DEU-2011-0006872

PATIENT
  Age: 74 Year
  Sex: Female

DRUGS (3)
  1. CLONIDINE [Suspect]
     Indication: CANCER PAIN
     Dosage: UNK UNK, SEE TEXT
     Route: 008
  2. MORPHINE SULFATE [Suspect]
     Indication: CANCER PAIN
     Dosage: UNK UNK, SEE TEXT
     Route: 008
  3. BUPIVACAINE HCL [Suspect]
     Indication: CANCER PAIN
     Dosage: UNK UNK, SEE TEXT
     Route: 008

REACTIONS (2)
  - ULCER [None]
  - NECROSIS [None]
